FAERS Safety Report 6895167-X (Version None)
Quarter: 2010Q3

REPORT INFORMATION
  Report Type: 
  Country: None (occurrence: None)
  Receive Date: 20100802
  Receipt Date: 20100720
  Transmission Date: 20110219
  Serious: Yes (Death, Other)
  Sender: FDA-Public Use
  Company Number: US-ELI_LILLY_AND_COMPANY-US201007002239

PATIENT
  Sex: Male

DRUGS (8)
  1. FORTEO [Suspect]
     Indication: OSTEOPOROSIS
     Dosage: 20 UG, DAILY (1/D)
     Dates: end: 20100628
  2. PREDNISONE [Concomitant]
     Dosage: 25 MG, DAILY (1/D)
  3. MUCINEX [Concomitant]
     Dosage: 600 MG, 2/D
  4. ALBUTEROL SULFATE AND IPRATROPIUM BROMIDE [Concomitant]
  5. SYMBICORT [Concomitant]
     Dosage: UNK, 2/D
  6. CALTRATE [Concomitant]
  7. FISH OIL [Concomitant]
  8. CENTRUM SILVER [Concomitant]

REACTIONS (11)
  - BACTERIAL INFECTION [None]
  - COUGH [None]
  - DEATH [None]
  - DECREASED APPETITE [None]
  - DYSPNOEA [None]
  - INJECTION SITE HAEMATOMA [None]
  - LIPOATROPHY [None]
  - MALAISE [None]
  - RALES [None]
  - RIB FRACTURE [None]
  - WEIGHT DECREASED [None]
